FAERS Safety Report 24375564 (Version 2)
Quarter: 2024Q4

REPORT INFORMATION
  Report Type: Spontaneous
  Country: US (occurrence: US)
  Receive Date: 20240928
  Receipt Date: 20241003
  Transmission Date: 20250114
  Serious: No
  Sender: AMGEN
  Company Number: US-AMGEN-USASP2024193256

PATIENT

DRUGS (1)
  1. MVASI [Suspect]
     Active Substance: BEVACIZUMAB-AWWB
     Indication: Product used for unknown indication
     Dosage: UNK (DOSE ORDERED: 1100 MG, DOSE REQUESTED: 2 X 400 MG, 3 X 100 MG VIALS)
     Route: 065

REACTIONS (1)
  - Unevaluable event [Unknown]
